FAERS Safety Report 18209216 (Version 1)
Quarter: 2020Q3

REPORT INFORMATION
  Report Type: Report from Study
  Country: AR (occurrence: AR)
  Receive Date: 20200828
  Receipt Date: 20200828
  Transmission Date: 20201103
  Serious: Yes (Hospitalization)
  Sender: FDA-Public Use
  Company Number: AR-GUERBET-AR-20200001

PATIENT
  Sex: Female

DRUGS (2)
  1. GELATIN SPONGE, ABSORBABLE [Suspect]
     Active Substance: GELATIN
     Indication: PORTAL VEIN EMBOLISATION
     Route: 042
  2. LIPIODOL ULTRA?FLUIDE [Suspect]
     Active Substance: ETHIODIZED OIL
     Indication: PORTAL VEIN EMBOLISATION
     Route: 042

REACTIONS (2)
  - Subcapsular hepatic haematoma [Recovered/Resolved]
  - Product use in unapproved indication [Recovered/Resolved]
